FAERS Safety Report 18579917 (Version 2)
Quarter: 2021Q3

REPORT INFORMATION
  Report Type: Spontaneous
  Country: US (occurrence: US)
  Receive Date: 20201204
  Receipt Date: 20210726
  Transmission Date: 20211014
  Serious: Yes (Other)
  Sender: FDA-Public Use
  Company Number: US-ASTRAZENECA-2020SF59669

PATIENT
  Sex: Female

DRUGS (15)
  1. PREVACID [Suspect]
     Active Substance: LANSOPRAZOLE
     Indication: GASTROOESOPHAGEAL REFLUX DISEASE
     Route: 065
     Dates: start: 201201, end: 201512
  2. ZANTAC [Concomitant]
     Active Substance: RANITIDINE HYDROCHLORIDE
  3. AXID AR [Concomitant]
     Active Substance: NIZATIDINE
  4. CIMETIDINE [Concomitant]
     Active Substance: CIMETIDINE
  5. PRILOSEC [Suspect]
     Active Substance: OMEPRAZOLE MAGNESIUM
     Indication: GASTROOESOPHAGEAL REFLUX DISEASE
     Route: 048
     Dates: start: 201201, end: 201512
  6. AXID [Concomitant]
     Active Substance: NIZATIDINE
  7. FAMOTIDINE. [Concomitant]
     Active Substance: FAMOTIDINE
  8. NIZATIDINE. [Concomitant]
     Active Substance: NIZATIDINE
  9. FLUXID [Concomitant]
     Active Substance: FAMOTIDINE
  10. DUEXIS [Concomitant]
     Active Substance: FAMOTIDINE\IBUPROFEN
  11. PRILOSEC [Suspect]
     Active Substance: OMEPRAZOLE MAGNESIUM
     Indication: GASTROOESOPHAGEAL REFLUX DISEASE
     Route: 048
     Dates: start: 201201, end: 201512
  12. PREVACID [Suspect]
     Active Substance: LANSOPRAZOLE
     Indication: GASTROOESOPHAGEAL REFLUX DISEASE
     Route: 065
     Dates: start: 201201, end: 201512
  13. CIMETIDINE HYDROCHLORIDE. [Concomitant]
     Active Substance: CIMETIDINE HYDROCHLORIDE
  14. PEPCID [Concomitant]
     Active Substance: FAMOTIDINE
  15. SULFAMETH/TMP [Concomitant]
     Active Substance: SULFAMETHOXAZOLE\TRIMETHOPRIM

REACTIONS (2)
  - End stage renal disease [Not Recovered/Not Resolved]
  - Chronic kidney disease [Not Recovered/Not Resolved]
